FAERS Safety Report 9686772 (Version 1)
Quarter: 2013Q4

REPORT INFORMATION
  Report Type: Spontaneous
  Country: US (occurrence: US)
  Receive Date: 20131113
  Receipt Date: 20131113
  Transmission Date: 20140711
  Serious: Yes (Other)
  Sender: FDA-Public Use
  Company Number: US-PFIZER INC-2013322589

PATIENT
  Age: 47 Year
  Sex: Female

DRUGS (5)
  1. CHANTIX [Suspect]
     Indication: SMOKING CESSATION THERAPY
     Dosage: 1 MG, 2X/DAY
     Route: 048
  2. LYRICA [Suspect]
     Dosage: 200 MG, 2X/DAY
     Route: 048
  3. CLONAZEPAM [Concomitant]
     Dosage: UNK
  4. SAVELLA [Concomitant]
     Dosage: UNK
  5. TIZANIDINE [Concomitant]
     Dosage: UNK

REACTIONS (1)
  - Breast cancer [Unknown]
